FAERS Safety Report 6015552-8 (Version None)
Quarter: 2008Q4

REPORT INFORMATION
  Report Type: 
  Country: None (occurrence: None)
  Receive Date: 20081218
  Receipt Date: 20081210
  Transmission Date: 20090506
  Serious: Yes (Hospitalization)
  Sender: FDA-Public Use
  Company Number: DSA_32908_2008

PATIENT
  Age: 67 Year
  Sex: Female

DRUGS (3)
  1. ENALAPRIL MALEATE [Suspect]
     Indication: HYPERTENSION
     Dosage: (DF ORAL)
     Route: 048
     Dates: start: 19740101, end: 20080401
  2. INSULIN GLARGINE [Concomitant]
  3. LEVOTHYROXINE SODIUM [Concomitant]

REACTIONS (3)
  - HAEMOLYTIC ANAEMIA [None]
  - MYELODYSPLASTIC SYNDROME [None]
  - PRODUCT QUALITY ISSUE [None]
